FAERS Safety Report 20743016 (Version 3)
Quarter: 2025Q1

REPORT INFORMATION
  Report Type: Spontaneous
  Country: US (occurrence: US)
  Receive Date: 20220425
  Receipt Date: 20250106
  Transmission Date: 20250409
  Serious: Yes (Disabling, Other)
  Sender: ORGANON
  Company Number: US-ORGANON-O2204USA001696

PATIENT
  Sex: Female

DRUGS (3)
  1. SINGULAIR [Suspect]
     Active Substance: MONTELUKAST SODIUM
     Route: 048
     Dates: start: 2010, end: 2021
  2. SINGULAIR [Suspect]
     Active Substance: MONTELUKAST SODIUM
     Dosage: 1 TABLET, QD (EVERYDAY) (IN THE PM)
     Route: 048
     Dates: start: 20200212
  3. MONTELUKAST SODIUM [Suspect]
     Active Substance: MONTELUKAST SODIUM

REACTIONS (10)
  - Neuropsychological symptoms [Not Recovered/Not Resolved]
  - Major depression [Not Recovered/Not Resolved]
  - Generalised anxiety disorder [Not Recovered/Not Resolved]
  - Suicidal ideation [Recovered/Resolved]
  - Hallucination, visual [Not Recovered/Not Resolved]
  - Hallucination, auditory [Recovered/Resolved]
  - Bipolar disorder [Recovering/Resolving]
  - Mania [Recovering/Resolving]
  - Panic attack [Unknown]
  - Mood swings [Recovering/Resolving]

NARRATIVE: CASE EVENT DATE: 20170831
